FAERS Safety Report 5702151-8 (Version None)
Quarter: 2008Q2

REPORT INFORMATION
  Report Type: 
  Country: None (occurrence: None)
  Receive Date: 20080411
  Receipt Date: 20071126
  Transmission Date: 20081010
  Serious: No
  Sender: FDA-Public Use
  Company Number: US-ABBOTT-07P-163-0426683-00

PATIENT
  Sex: Female
  Weight: 88.53 kg

DRUGS (6)
  1. DEPAKOTE SODIUM DELAYED RELEASE 250MG [Suspect]
     Indication: CONVULSION
     Dosage: LOT #/ EXP NOT ON BOTTLE PER THE PATIENT
     Route: 048
     Dates: start: 19990101
  2. SUMATRIPTAN SUCCINATE [Concomitant]
     Indication: MIGRAINE
     Dosage: 100MG ONE (UNIT DOSE)
     Route: 048
  3. ACTOPLUS MET [Concomitant]
     Indication: DIABETES MELLITUS
     Route: 048
  4. CARBAMAZEPINE [Concomitant]
     Indication: CONVULSION
     Route: 048
  5. LEVOSALBUTAMOL [Concomitant]
     Indication: ASTHMA
     Dosage: IH AND NEBULIZER (ROUTE)
  6. PULMICORT [Concomitant]
     Indication: ASTHMA
     Route: 055

REACTIONS (1)
  - ANTICONVULSANT DRUG LEVEL DECREASED [None]
